FAERS Safety Report 9237063 (Version 2)
Quarter: 2013Q4

REPORT INFORMATION
  Report Type: Spontaneous
  Country: GB (occurrence: GB)
  Receive Date: 20130417
  Receipt Date: 20131017
  Transmission Date: 20140711
  Serious: Yes (Other)
  Sender: FDA-Public Use
  Company Number: GB-BANPHARM-20131152

PATIENT
  Age: 73 Year
  Sex: Female

DRUGS (6)
  1. IBUPROFEN UNKNOWN PRODUCT [Suspect]
     Indication: PAIN
     Dosage: 400 MG, TID,
     Dates: start: 200605, end: 20060522
  2. OMEPRAZOLE [Suspect]
     Indication: PROPHYLAXIS AGAINST GASTROINTESTINAL ULCER
     Dosage: 20 MG, QD,
     Route: 048
     Dates: start: 20060511, end: 20060521
  3. CITALOPRAM [Concomitant]
     Indication: DEPRESSION
     Dosage: 20 MG, QD,
     Route: 048
     Dates: start: 20060511
  4. FRAGMIN [Concomitant]
     Indication: THROMBOSIS PROPHYLAXIS
     Dosage: 2500 IU,
     Route: 058
     Dates: start: 20060515
  5. PARACETAMOL [Concomitant]
     Indication: PAIN
     Dosage: 1 G, QID
     Route: 048
     Dates: start: 20060515
  6. PROCHLORPERAZINE [Concomitant]
     Indication: NAUSEA
     Dosage: 5 MG, TID,
     Route: 048
     Dates: start: 20060508

REACTIONS (3)
  - Liver function test abnormal [Recovered/Resolved]
  - Alanine aminotransferase increased [Recovering/Resolving]
  - Gamma-glutamyltransferase increased [Recovering/Resolving]
